FAERS Safety Report 9305747 (Version 1)
Quarter: 2013Q2

REPORT INFORMATION
  Report Type: Spontaneous
  Country: US (occurrence: None)
  Receive Date: 20130522
  Receipt Date: 20130522
  Transmission Date: 20140414
  Serious: Yes (Other)
  Sender: FDA-Public Use
  Company Number: None

PATIENT
  Age: 89 None
  Sex: Female
  Weight: 56.7 kg

DRUGS (1)
  1. PROLIA [Suspect]
     Indication: OSTEOPOROSIS
     Dosage: 1 SHOT EVERY 6 MONTHS
     Dates: start: 20130318

REACTIONS (3)
  - Arthralgia [None]
  - Myalgia [None]
  - Urinary tract infection [None]
